FAERS Safety Report 18169770 (Version 1)
Quarter: 2020Q3

REPORT INFORMATION
  Report Type: Spontaneous
  Country: US (occurrence: US)
  Receive Date: 20200819
  Receipt Date: 20200819
  Transmission Date: 20201103
  Serious: Yes (Disabling)
  Sender: FDA-Public Use
  Company Number: None

PATIENT
  Age: 55 Year
  Sex: Female
  Weight: 61.2 kg

DRUGS (8)
  1. OMEGA MEND [Concomitant]
  2. LIPOSOMAL [Concomitant]
     Active Substance: AMPHOTERICIN B
  3. PROBIOTIC SUPPLEMENT [Concomitant]
  4. DOXYCYCLINE HYCLATE, 100 MG CAP AMNE [Suspect]
     Active Substance: DOXYCYCLINE HYCLATE
     Indication: LYME DISEASE
     Dosage: ?          QUANTITY:42 CAPSULE(S);?
     Route: 048
     Dates: start: 20200715, end: 20200803
  5. RESVERATROL [Concomitant]
     Active Substance: DIETARY SUPPLEMENT\RESVERATROL
  6. VITAMIN D3?K2 [Concomitant]
  7. LEVOTHYROXINE. [Concomitant]
     Active Substance: LEVOTHYROXINE
  8. VITAMIN C [Concomitant]
     Active Substance: ASCORBIC ACID

REACTIONS (5)
  - Abdominal pain lower [None]
  - Gastric ulcer [None]
  - Back pain [None]
  - Insomnia [None]
  - Arthralgia [None]

NARRATIVE: CASE EVENT DATE: 20200716
